FAERS Safety Report 25007896 (Version 1)
Quarter: 2025Q1

REPORT INFORMATION
  Report Type: Spontaneous
  Country: CN (occurrence: CN)
  Receive Date: 20250225
  Receipt Date: 20250225
  Transmission Date: 20250408
  Serious: Yes (Other)
  Sender: BOEHRINGER INGELHEIM
  Company Number: CN-BoehringerIngelheim-2025-BI-010795

PATIENT
  Age: 11 Year
  Sex: Female
  Weight: 31.000 kg

DRUGS (4)
  1. ATROVENT [Suspect]
     Active Substance: IPRATROPIUM BROMIDE
     Indication: Bronchitis
     Dates: start: 20231024, end: 20231024
  2. PULMICORT RESPULES [Suspect]
     Active Substance: BUDESONIDE
     Indication: Bronchitis
     Dosage: FORM OF ADMIN:  SUSPENSION
     Dates: start: 20231024, end: 20231024
  3. BRICANYL [Suspect]
     Active Substance: TERBUTALINE SULFATE
     Indication: Bronchitis
     Dates: start: 20231024, end: 20231024
  4. SODIUM CHLORIDE [Concomitant]
     Active Substance: SODIUM CHLORIDE
     Indication: Solvent sensitivity
     Dates: start: 20231024, end: 20231024

REACTIONS (5)
  - Rash [Recovered/Resolved]
  - Pruritus [Recovered/Resolved]
  - Heart rate increased [Recovered/Resolved]
  - Tachypnoea [Recovered/Resolved]
  - Flushing [Recovered/Resolved]

NARRATIVE: CASE EVENT DATE: 20231024
